FAERS Safety Report 16093872 (Version 1)
Quarter: 2019Q2

REPORT INFORMATION
  Report Type: Spontaneous
  Country: US (occurrence: US)
  Receive Date: 20190319
  Receipt Date: 20190319
  Transmission Date: 20190711
  Serious: Yes (Other)
  Sender: FDA-Public Use
  Company Number: None

PATIENT
  Age: 51 Year
  Sex: Male
  Weight: 132.4 kg

DRUGS (13)
  1. METORPROLOL SUCCINATE [Concomitant]
  2. BENZONATATE. [Concomitant]
     Active Substance: BENZONATATE
  3. DILTIAZEM ER [Concomitant]
     Active Substance: DILTIAZEM
  4. APIXABAN [Concomitant]
     Active Substance: APIXABAN
  5. MULTIVITAMIN [Concomitant]
     Active Substance: VITAMINS
  6. OMEPRAZOLE. [Concomitant]
     Active Substance: OMEPRAZOLE
  7. ATORVASTATIN [Concomitant]
     Active Substance: ATORVASTATIN
  8. SOTALOL. [Concomitant]
     Active Substance: SOTALOL
  9. ASPIRIN. [Concomitant]
     Active Substance: ASPIRIN
  10. ALLOPURINOL. [Concomitant]
     Active Substance: ALLOPURINOL
  11. LUMASON [Suspect]
     Active Substance: SULFUR HEXAFLUORIDE
     Indication: CARDIAC IMAGING PROCEDURE
     Dosage: ?          OTHER FREQUENCY:ONCE;?
     Route: 040
     Dates: start: 20190315, end: 20190315
  12. CLOPIDOGREL [Concomitant]
     Active Substance: CLOPIDOGREL BISULFATE
  13. FUROSEMIDE. [Concomitant]
     Active Substance: FUROSEMIDE

REACTIONS (5)
  - Respiratory distress [None]
  - Hypoxia [None]
  - Injection related reaction [None]
  - Tachypnoea [None]
  - Oxygen saturation decreased [None]

NARRATIVE: CASE EVENT DATE: 20190315
